FAERS Safety Report 7981556-9 (Version None)
Quarter: 2011Q4

REPORT INFORMATION
  Report Type: 
  Country: None (occurrence: None)
  Receive Date: 20111215
  Receipt Date: 20111212
  Transmission Date: 20120403
  Serious: Yes (Other)
  Sender: FDA-Public Use
  Company Number: DE-PFIZER INC-2011301949

PATIENT
  Age: 16 Year
  Sex: Female

DRUGS (2)
  1. VALPROATE SODIUM [Concomitant]
     Dosage: 500 MG, UNK
  2. VENLAFAXINE HYDROCHLORIDE [Suspect]
     Dosage: 150 MG, UNK

REACTIONS (1)
  - ELECTROENCEPHALOGRAM ABNORMAL [None]
